FAERS Safety Report 7258677-1 (Version None)
Quarter: 2011Q1

REPORT INFORMATION
  Report Type: 
  Country: None (occurrence: None)
  Receive Date: 20110129
  Receipt Date: 20100502
  Transmission Date: 20110831
  Serious: No
  Sender: FDA-Public Use
  Company Number: US-ABBOTT-09P-163-0611348-00

PATIENT
  Sex: Female

DRUGS (6)
  1. PREDNISONE [Concomitant]
     Indication: CROHN'S DISEASE
  2. HUMIRA [Suspect]
     Indication: CROHN'S DISEASE
     Dates: start: 20091109, end: 20091109
  3. FLAGYL [Concomitant]
     Indication: CROHN'S DISEASE
  4. APRISO [Concomitant]
     Indication: PRODUCT USED FOR UNKNOWN INDICATION
  5. HUMIRA [Suspect]
     Dates: start: 20091123, end: 20091123
  6. CIPRO [Concomitant]
     Indication: CROHN'S DISEASE

REACTIONS (5)
  - INJECTION SITE PAIN [None]
  - INJECTION SITE WARMTH [None]
  - OROPHARYNGEAL DISCOMFORT [None]
  - INJECTION SITE REACTION [None]
  - INJECTION SITE INDURATION [None]
